FAERS Safety Report 7868602-8 (Version None)
Quarter: 2011Q4

REPORT INFORMATION
  Report Type: 
  Country: None (occurrence: None)
  Receive Date: 20111028
  Receipt Date: 20101215
  Transmission Date: 20120403
  Serious: No
  Sender: FDA-Public Use
  Company Number: US-AMGEN-USASP2010009465

PATIENT
  Age: 57 Year
  Sex: Female
  Weight: 49.887 kg

DRUGS (6)
  1. ENBREL [Suspect]
     Indication: PRODUCT USED FOR UNKNOWN INDICATION
     Dosage: 50 MG, QWK
     Route: 058
  2. NAPROSYN [Concomitant]
     Dosage: 250 MG, UNK
  3. ASPIRIN [Concomitant]
     Dosage: 81 MG, UNK
  4. DIAZEPAM [Concomitant]
     Dosage: 2 MG, UNK
  5. OXYCODONE HCL [Concomitant]
     Dosage: 10 MG, UNK
  6. SYNTHROID [Concomitant]
     Dosage: 88 A?G, UNK

REACTIONS (4)
  - INJECTION SITE REACTION [None]
  - INJECTION SITE PRURITUS [None]
  - INJECTION SITE ERYTHEMA [None]
  - SINUS CONGESTION [None]
